FAERS Safety Report 8135119-5 (Version None)
Quarter: 2012Q1

REPORT INFORMATION
  Report Type: 
  Country: None (occurrence: None)
  Receive Date: 20120214
  Receipt Date: 20120206
  Transmission Date: 20120608
  Serious: Yes (Hospitalization, Disabling, Other)
  Sender: FDA-Public Use
  Company Number: US-BAYER-2011-034725

PATIENT
  Age: 40 Year
  Sex: Female
  Weight: 163.27 kg

DRUGS (9)
  1. YAZ [Suspect]
     Indication: MENSTRUATION IRREGULAR
     Dosage: UNK
     Dates: start: 20090701, end: 20090801
  2. METFORMIN HCL [Concomitant]
     Indication: DIABETES MELLITUS
     Dosage: UNK UNK, QD
     Dates: start: 20090101, end: 20100101
  3. ALDACTONE [Concomitant]
     Indication: FLUID RETENTION
     Dosage: UNK
     Dates: start: 20090101, end: 20100101
  4. BENICAR HCT [Concomitant]
     Indication: HYPERTENSION
     Dosage: UNK
     Dates: start: 19950101, end: 20090101
  5. VERAPAMIL [Concomitant]
     Indication: HYPERTENSION
     Dosage: UNK
     Dates: start: 20060101, end: 20090101
  6. LASIX [Concomitant]
     Indication: FLUID RETENTION
     Dosage: UNK
     Dates: start: 20030101, end: 20080101
  7. LASIX [Concomitant]
     Dosage: UNK
     Dates: start: 20090101, end: 20100101
  8. ADDERALL 5 [Concomitant]
     Indication: ATTENTION DEFICIT/HYPERACTIVITY DISORDER
     Dosage: UNK UNK, PRN
     Dates: start: 20070101, end: 20110101
  9. KLOR-CON [Concomitant]
     Indication: FLUID RETENTION
     Dosage: UNK
     Dates: start: 20090101, end: 20100101

REACTIONS (8)
  - DEEP VEIN THROMBOSIS [None]
  - ANXIETY [None]
  - PSYCHOLOGICAL TRAUMA [None]
  - PULMONARY EMBOLISM [None]
  - PAIN [None]
  - SWELLING [None]
  - FEAR [None]
  - ANHEDONIA [None]
